FAERS Safety Report 23517092 (Version 1)
Quarter: 2024Q1

REPORT INFORMATION
  Report Type: Report from Study
  Country: UZ (occurrence: UZ)
  Receive Date: 20240213
  Receipt Date: 20240213
  Transmission Date: 20240410
  Serious: Yes (Death, Hospitalization)
  Sender: FDA-Public Use
  Company Number: UZ-MYLANLABS-2024M1005584

PATIENT
  Sex: Female
  Weight: 37 kg

DRUGS (4)
  1. PRETOMANID [Suspect]
     Active Substance: PRETOMANID
     Indication: Pulmonary tuberculosis
     Dosage: 200 MILLIGRAM
     Route: 048
     Dates: start: 20231027, end: 20231223
  2. MOXIFLOXACIN [Suspect]
     Active Substance: MOXIFLOXACIN
     Indication: Pulmonary tuberculosis
     Dosage: 400 MILLIGRAM
     Route: 048
     Dates: start: 20231027, end: 20231223
  3. BEDAQUILINE [Suspect]
     Active Substance: BEDAQUILINE
     Indication: Pulmonary tuberculosis
     Dosage: 200 MILLIGRAM
     Route: 048
     Dates: start: 20231027, end: 20231223
  4. LINEZOLID [Suspect]
     Active Substance: LINEZOLID
     Indication: Pulmonary tuberculosis
     Dosage: 300 UNK
     Route: 048
     Dates: start: 20231027, end: 20231223

REACTIONS (8)
  - Myocardial ischaemia [Fatal]
  - Angina pectoris [Fatal]
  - Cardiopulmonary failure [Fatal]
  - Pulmonary embolism [Fatal]
  - Nausea [Recovered/Resolved]
  - Dyspepsia [Recovered/Resolved]
  - Abdominal pain upper [Recovered/Resolved]
  - Headache [Recovered/Resolved]

NARRATIVE: CASE EVENT DATE: 20231223
